FAERS Safety Report 10072521 (Version 1)
Quarter: 2014Q2

REPORT INFORMATION
  Report Type: Spontaneous
  Country: FR (occurrence: FR)
  Receive Date: 20140411
  Receipt Date: 20140411
  Transmission Date: 20141212
  Serious: Yes (Hospitalization)
  Sender: FDA-Public Use
  Company Number: FR-MERCK-1404FRA000374

PATIENT
  Age: 49 Year
  Sex: Male

DRUGS (7)
  1. VICTRELIS [Suspect]
     Indication: HEPATITIS C VIRUS TEST POSITIVE
     Dosage: 800 MG, TID
     Route: 048
     Dates: start: 201311, end: 20131202
  2. VIRAFERONPEG [Suspect]
     Indication: HEPATITIS C VIRUS TEST POSITIVE
     Dosage: UNK
     Route: 058
     Dates: start: 201310, end: 20131202
  3. REBETOL [Suspect]
     Indication: HEPATITIS C VIRUS TEST POSITIVE
     Dosage: 1 G, QD
     Route: 048
     Dates: start: 201310, end: 20131202
  4. PLAVIX [Concomitant]
     Dosage: 75 MG, QD
     Route: 048
  5. EUPANTOL [Concomitant]
     Dosage: UNK
     Route: 048
  6. AMLODIPINE [Concomitant]
     Dosage: 5 MG, QD
     Route: 048
  7. SEROPLEX [Concomitant]
     Indication: DEPRESSION
     Dosage: 10 MG, QD
     Route: 048

REACTIONS (3)
  - Psychomotor skills impaired [Unknown]
  - Asthenia [Unknown]
  - Weight decreased [Unknown]
